FAERS Safety Report 5347035-2 (Version None)
Quarter: 2007Q2

REPORT INFORMATION
  Report Type: 
  Country: None (occurrence: None)
  Receive Date: 20070604
  Receipt Date: 20070522
  Transmission Date: 20071010
  Serious: No
  Sender: FDA-Public Use
  Company Number: BE-GUERBET-20070001

PATIENT
  Sex: Female

DRUGS (1)
  1. DOTAREM:/MEGLUMINE GADOTERATE [Suspect]
     Indication: NUCLEAR MAGNETIC RESONANCE IMAGING
     Dosage: 15, ML MILLILITRE (S), 1, TOTAL
     Dates: start: 20061226, end: 20061226

REACTIONS (4)
  - BURNING SENSATION [None]
  - DISTURBANCE IN SOCIAL BEHAVIOUR [None]
  - MYALGIA [None]
  - SENSORY DISTURBANCE [None]
